FAERS Safety Report 19225420 (Version 1)
Quarter: 2021Q2

REPORT INFORMATION
  Report Type: Report from Study
  Country: US (occurrence: US)
  Receive Date: 20210506
  Receipt Date: 20210506
  Transmission Date: 20210717
  Serious: Yes (Hospitalization)
  Sender: FDA-Public Use
  Company Number: US-BAYER-2021-135456

PATIENT
  Sex: Female
  Weight: 43.54 kg

DRUGS (4)
  1. ADEMPAS [Suspect]
     Active Substance: RIOCIGUAT
     Indication: PULMONARY ARTERIAL HYPERTENSION
     Dosage: UNK
     Route: 048
     Dates: start: 20151202
  2. UPTRAVI [Concomitant]
     Active Substance: SELEXIPAG
  3. ADEMPAS [Suspect]
     Active Substance: RIOCIGUAT
     Indication: PULMONARY ARTERIAL HYPERTENSION
     Dosage: 2.5 MG, TID
     Route: 048
  4. AMBRISENTAN [Concomitant]
     Active Substance: AMBRISENTAN

REACTIONS (2)
  - Fluid retention [None]
  - Hospitalisation [None]
